FAERS Safety Report 13950822 (Version 1)
Quarter: 2017Q3

REPORT INFORMATION
  Report Type: Spontaneous
  Country: US (occurrence: US)
  Receive Date: 20170908
  Receipt Date: 20170908
  Transmission Date: 20171128
  Serious: No
  Sender: FDA-Public Use
  Company Number: US-US WORLDMEDS, LLC-USW201609-000657

PATIENT
  Sex: Female

DRUGS (1)
  1. ZELNORM [Suspect]
     Active Substance: TEGASEROD MALEATE

REACTIONS (2)
  - Drug intolerance [Unknown]
  - Hypersensitivity [Unknown]
